FAERS Safety Report 15378142 (Version 1)
Quarter: 2018Q3

REPORT INFORMATION
  Report Type: Spontaneous
  Country: US (occurrence: US)
  Receive Date: 20180913
  Receipt Date: 20180913
  Transmission Date: 20181010
  Serious: No
  Sender: FDA-Public Use
  Company Number: US-ALLERGAN-1811047US

PATIENT
  Age: 63 Year
  Sex: Female

DRUGS (1)
  1. VANIQA [Suspect]
     Active Substance: EFLORNITHINE HYDROCHLORIDE
     Indication: HAIR GROWTH RATE ABNORMAL
     Dosage: UNK, BID
     Route: 061
     Dates: start: 2010, end: 201801

REACTIONS (3)
  - Drug dose omission [Unknown]
  - Hair growth abnormal [Not Recovered/Not Resolved]
  - Product availability issue [Unknown]

NARRATIVE: CASE EVENT DATE: 201801
